FAERS Safety Report 18230200 (Version 1)
Quarter: 2020Q3

REPORT INFORMATION
  Report Type: Spontaneous
  Country: FR (occurrence: FR)
  Receive Date: 20200903
  Receipt Date: 20200903
  Transmission Date: 20201103
  Serious: Yes (Hospitalization)
  Sender: FDA-Public Use
  Company Number: FR-PURDUE-USA-2020-0164187

PATIENT
  Age: 47 Year
  Sex: Female

DRUGS (2)
  1. DUROGESIC [Suspect]
     Active Substance: FENTANYL
     Indication: BEHCET^S SYNDROME
     Dosage: 25 MCG, Q72H
     Route: 062
  2. OXYNORMORO [Suspect]
     Active Substance: OXYCODONE HYDROCHLORIDE
     Indication: BEHCET^S SYNDROME
     Dosage: 5 MG, UNK (STRENGTH 5 MG)
     Route: 048

REACTIONS (1)
  - Adrenal insufficiency [Not Recovered/Not Resolved]

NARRATIVE: CASE EVENT DATE: 201708
